FAERS Safety Report 6479509-5 (Version None)
Quarter: 2009Q4

REPORT INFORMATION
  Report Type: 
  Country: None (occurrence: None)
  Receive Date: 20091207
  Receipt Date: 20091207
  Transmission Date: 20100525
  Serious: Yes (Other)
  Sender: FDA-Public Use
  Company Number: None

PATIENT
  Age: 4 Year
  Sex: Female
  Weight: 13.6079 kg

DRUGS (1)
  1. MORPHINE [Suspect]
     Indication: PAIN

REACTIONS (4)
  - CRYING [None]
  - CYANOSIS [None]
  - OXYGEN SATURATION DECREASED [None]
  - PAIN [None]
